FAERS Safety Report 18503121 (Version 1)
Quarter: 2020Q4

REPORT INFORMATION
  Report Type: Spontaneous
  Country: NL (occurrence: NL)
  Receive Date: 20201113
  Receipt Date: 20201113
  Transmission Date: 20210114
  Serious: Yes (Life-Threatening)
  Sender: FDA-Public Use
  Company Number: NL-TEVA-2020-NL-1847714

PATIENT
  Age: 57 Year
  Sex: Female
  Weight: 79.1 kg

DRUGS (10)
  1. TOPIRAMAAT TABLET OMHULD 100MG / BRAND NAME NOT SPECIFIED [Interacting]
     Active Substance: TOPIRAMATE
     Indication: SCHIZOAFFECTIVE DISORDER
  2. BUPRENORFINE PLEISTER 15UG/UUR / BRAND NAME NOT SPECIFIED [Concomitant]
     Dosage: 15 MICROGRAM , THERAPY START DATE AND THERAPY END DATE : ASKED BUT UNKNOWN
  3. SALBUTAMOL AEROSOL 100UG/DO / BRAND NAME NOT SPECIFIED [Concomitant]
     Dosage: 100 MICROGRAMS PER DOSE, THERAPY START DATE AND THERAPY END DATE : ASKED BUT UNKNOWN
  4. CLONIDINE TABLET 0,025MG / BRAND NAME NOT SPECIFIED [Suspect]
     Active Substance: CLONIDINE
     Indication: HYPERHIDROSIS
     Dosage: .1 MILLIGRAM DAILY;
     Dates: start: 1900, end: 20200813
  5. TOPIRAMAAT TABLET OMHULD 100MG / BRAND NAME NOT SPECIFIED [Interacting]
     Active Substance: TOPIRAMATE
     Indication: BIPOLAR DISORDER
     Dosage: 1200 MILLIGRAM DAILY;  3 TABLETS,  THERAPY END DATE : ASKED BUT UNKNOWN
     Dates: start: 1900
  6. OMEPRAZOL CAPSULE MSR 20MG / BRAND NAME NOT SPECIFIED [Concomitant]
     Active Substance: OMEPRAZOLE
     Dosage: 20 MG (MILLIGRAM), THERAPY START DATE AND THERAPY END DATE : ASKED BUT UNKNOWN
  7. TEMAZEPAM CAPSULE 10MG / BRAND NAME NOT SPECIFIED [Concomitant]
     Dosage: 10 MG (MILLIGRAM), THERAPY START DATE AND THERAPY END DATE : ASKED BUT UNKNOWN
  8. CLONIDINE TABLET 0,025MG / BRAND NAME NOT SPECIFIED [Interacting]
     Active Substance: CLONIDINE
     Indication: HYPERHIDROSIS
  9. QUETIAPINE TABLET FO 200MG / BRAND NAME NOT SPECIFIED [Concomitant]
     Dosage: 200 MG (MILLIGRAM), THERAPY START DATE AND THERAPY END DATE : ASKED BUT UNKNOWN
  10. FERROFUMARAAT TABLET 200MG / BRAND NAME NOT SPECIFIED [Concomitant]
     Dosage: 200 MG (MILLIGRAM), THERAPY START DATE AND THERAPY END DATE : ASKED BUT UNKNOWN

REACTIONS (2)
  - Potentiating drug interaction [Recovering/Resolving]
  - Hyperthermia [Recovering/Resolving]

NARRATIVE: CASE EVENT DATE: 20200813
